FAERS Safety Report 15309812 (Version 1)
Quarter: 2018Q3

REPORT INFORMATION
  Report Type: Spontaneous
  Country: SR (occurrence: SR)
  Receive Date: 20180812
  Receipt Date: 20180812
  Transmission Date: 20181010
  Serious: No
  Sender: FDA-Public Use
  Company Number: None

PATIENT
  Age: 20 Year
  Sex: Female
  Weight: 60 kg

DRUGS (1)
  1. MICROGYNON FE [Suspect]
     Active Substance: ETHINYL ESTRADIOL\LEVONORGESTREL
     Indication: CONTRACEPTION
     Dosage: ?          QUANTITY:1 TABLET(S);?
     Route: 048
     Dates: start: 20070101, end: 20150101

REACTIONS (2)
  - Vulvovaginal mycotic infection [None]
  - Depression [None]

NARRATIVE: CASE EVENT DATE: 20150105
